FAERS Safety Report 23895164 (Version 1)
Quarter: 2024Q2

REPORT INFORMATION
  Report Type: Spontaneous
  Country: US (occurrence: US)
  Receive Date: 20240524
  Receipt Date: 20240524
  Transmission Date: 20240716
  Serious: Yes (Other)
  Sender: FDA-Public Use
  Company Number: US-CIPLA LTD.-2024US05211

PATIENT

DRUGS (3)
  1. EMTRICITABINE\TENOFOVIR [Suspect]
     Active Substance: EMTRICITABINE\TENOFOVIR
     Indication: Antiretroviral therapy
     Dosage: UNK
     Route: 065
  2. ELVITEGRAVIR [Suspect]
     Active Substance: ELVITEGRAVIR
     Indication: Antiretroviral therapy
     Dosage: UNK
     Route: 065
  3. COBICISTAT [Suspect]
     Active Substance: COBICISTAT
     Indication: Antiretroviral therapy
     Dosage: UNK
     Route: 065

REACTIONS (2)
  - Foetal death [Unknown]
  - Exposure during pregnancy [Unknown]
